FAERS Safety Report 14948132 (Version 3)
Quarter: 2019Q1

REPORT INFORMATION
  Report Type: Report from Study
  Country: JP (occurrence: JP)
  Receive Date: 20180529
  Receipt Date: 20190215
  Transmission Date: 20190417
  Serious: Yes (Hospitalization)
  Sender: FDA-Public Use
  Company Number: JP-PFIZER INC-2018214531

PATIENT
  Age: 65 Year
  Sex: Female

DRUGS (11)
  1. ZIPRASIDONE HCL [Suspect]
     Active Substance: ZIPRASIDONE HYDROCHLORIDE
     Indication: SCHIZOPHRENIA
     Dosage: UNK
     Route: 048
     Dates: start: 20171213, end: 20171220
  2. LEXOTAN [Suspect]
     Active Substance: BROMAZEPAM
     Dosage: 15 MG, UNK
     Route: 048
  3. FLUNITRAZEPAM [Suspect]
     Active Substance: FLUNITRAZEPAM
     Dosage: 2 MG, UNK
     Route: 048
  4. LAXOBERON [Concomitant]
     Active Substance: SODIUM PICOSULFATE
     Dosage: UNK, AS NEEDED (Q.L. (PROPER DOSE; P.R.N.)
     Route: 048
  5. BROTIZOLAM [Suspect]
     Active Substance: BROTIZOLAM
     Dosage: 0.5 MG, UNK
     Route: 048
  6. OLANZAPINE OD [Suspect]
     Active Substance: OLANZAPINE
     Dosage: 20 MG, UNK
     Route: 048
  7. SHINLUCK [Concomitant]
     Active Substance: SODIUM PICOSULFATE
     Dosage: UNK, AS NEEDED (Q.L. (PROPER DOSE; P.R.N.)
     Route: 048
  8. LORAZEPAM. [Suspect]
     Active Substance: LORAZEPAM
     Dosage: 0.5 MG, AS NEEDED
     Route: 048
  9. GLYCERIN /00200601/ [Concomitant]
     Active Substance: GLYCERIN
     Dosage: 60 ML/DOSE, AS NEEDED
  10. ZIPRASIDONE HCL [Suspect]
     Active Substance: ZIPRASIDONE HYDROCHLORIDE
     Dosage: 120 MG, DAILY
     Route: 048
     Dates: start: 20171220
  11. LONASEN [Suspect]
     Active Substance: BLONANSERIN
     Dosage: 12 MG, UNK
     Route: 048

REACTIONS (2)
  - Radius fracture [Recovering/Resolving]
  - Ulna fracture [Recovering/Resolving]

NARRATIVE: CASE EVENT DATE: 20180516
